FAERS Safety Report 6275885-7 (Version None)
Quarter: 2009Q3

REPORT INFORMATION
  Report Type: 
  Country: None (occurrence: None)
  Receive Date: 20090720
  Receipt Date: 20090706
  Transmission Date: 20100115
  Serious: Yes (Hospitalization)
  Sender: FDA-Public Use
  Company Number: 2009-02706

PATIENT
  Age: 83 Year
  Sex: Female

DRUGS (3)
  1. VELCADE [Suspect]
     Indication: DIFFUSE LARGE B-CELL LYMPHOMA
     Dosage: 2.24 MG, INTRAVENOUS
     Route: 042
     Dates: start: 20090626, end: 20090703
  2. RITUXAN [Suspect]
     Indication: DIFFUSE LARGE B-CELL LYMPHOMA
     Dosage: 645 MG, INTRAVENOUS
     Route: 042
     Dates: start: 20090703, end: 20090703
  3. DOXIL [Suspect]
     Indication: DIFFUSE LARGE B-CELL LYMPHOMA
     Dosage: 52 MG, INTRAVENOUS
     Route: 042

REACTIONS (8)
  - CREPITATIONS [None]
  - CYTOKINE RELEASE SYNDROME [None]
  - ELECTROCARDIOGRAM ST SEGMENT DEPRESSION [None]
  - HEART RATE INCREASED [None]
  - HYPOTENSION [None]
  - JUGULAR VEIN DISTENSION [None]
  - MYOCARDITIS [None]
  - OXYGEN SATURATION DECREASED [None]
